FAERS Safety Report 13524693 (Version 1)
Quarter: 2017Q2

REPORT INFORMATION
  Report Type: Spontaneous
  Country: US (occurrence: US)
  Receive Date: 20170508
  Receipt Date: 20170508
  Transmission Date: 20170830
  Serious: Yes (Life-Threatening)
  Sender: FDA-Public Use
  Company Number: US-ROCHE-1088025

PATIENT
  Age: 75 Year
  Sex: Male
  Weight: 90.35 kg

DRUGS (2)
  1. AVASTIN [Suspect]
     Active Substance: BEVACIZUMAB
     Indication: COLON CANCER METASTATIC
     Route: 042
     Dates: start: 20120220, end: 20120424
  2. AVASTIN [Suspect]
     Active Substance: BEVACIZUMAB
     Dosage: HELD FOR ONE CYCLE
     Route: 042
     Dates: start: 20120508

REACTIONS (2)
  - Deep vein thrombosis [Recovered/Resolved]
  - Pulmonary embolism [Recovered/Resolved]

NARRATIVE: CASE EVENT DATE: 20120420
